FAERS Safety Report 8888258 (Version 1)
Quarter: 2012Q4

REPORT INFORMATION
  Report Type: 
  Country: US (occurrence: US)
  Receive Date: 20121106
  Receipt Date: 20121106
  Transmission Date: 20130627
  Serious: No
  Sender: FDA-Public Use
  Company Number: US-009507513-1211USA000658

PATIENT
  Age: 17 Year
  Sex: Female

DRUGS (1)
  1. NEXPLANON [Suspect]
     Indication: CONTRACEPTION
     Dosage: 1 rod
     Route: 059
     Dates: start: 20121026, end: 20121026

REACTIONS (3)
  - Device difficult to use [Unknown]
  - Device difficult to use [Unknown]
  - No adverse event [Unknown]
